FAERS Safety Report 9162005 (Version 2)
Quarter: 2013Q1

REPORT INFORMATION
  Report Type: Spontaneous
  Country: DE (occurrence: None)
  Receive Date: 20130220
  Receipt Date: 20130312
  Transmission Date: 20140127
  Serious: Yes (Other)
  Sender: FDA-Public Use
  Company Number: 2013P1002208

PATIENT
  Age: 39 Year
  Sex: Female

DRUGS (6)
  1. HEPARIN [Suspect]
     Indication: SURGERY
  2. MINOXIDIL [Concomitant]
  3. METOPROLOL [Concomitant]
  4. AMLODIPINE [Concomitant]
  5. VALSARTAN [Concomitant]
  6. FUROSEMIDE [Concomitant]

REACTIONS (2)
  - Heparin-induced thrombocytopenia [None]
  - Thrombosis in device [None]
